FAERS Safety Report 8843800 (Version 3)
Quarter: 2013Q1

REPORT INFORMATION
  Report Type: Report from Study
  Country: JP (occurrence: JP)
  Receive Date: 20121016
  Receipt Date: 20130329
  Transmission Date: 20140127
  Serious: Yes (Other)
  Sender: FDA-Public Use
  Company Number: JP-OTSUKA-JP-2012-16545

PATIENT
  Age: 77 Year
  Sex: Male
  Weight: 65 kg

DRUGS (13)
  1. SAMSCA [Suspect]
     Indication: FLUID RETENTION
     Dosage: 7.5 MG MILLIGRAM(S), QAM
     Route: 048
     Dates: start: 20120404, end: 20120406
  2. SAMSCA [Suspect]
     Dosage: 15 MG MILLIGRAM(S), QAM
     Route: 048
     Dates: start: 20120407, end: 20120420
  3. LASIX [Concomitant]
     Indication: CARDIAC FAILURE
     Dosage: 160 MG MILLIGRAM(S), DAILY DOSE
     Route: 048
     Dates: end: 20120409
  4. ASPARA POTASSIUM [Concomitant]
     Indication: PROPHYLAXIS
     Dosage: 2700 MG MILLIGRAM(S), DAILY DOSE
     Route: 048
  5. SELARA [Concomitant]
     Indication: CARDIAC FAILURE
     Dosage: 50 MG MILLIGRAM(S), DAILY DOSE
     Route: 048
  6. PIMOBENDAN [Concomitant]
     Indication: CARDIAC FAILURE
     Dosage: 1.25 MG MILLIGRAM(S), DAILY DOSE
     Route: 048
  7. ARTIST [Concomitant]
     Indication: CARDIAC FAILURE
     Dosage: 1.25 MG MILLIGRAM(S), DAILY DOSE
     Route: 048
  8. TAKEPRON [Concomitant]
     Indication: PROPHYLAXIS
     Dosage: 1 DF DOSAGE FORM, DAILY DOSE
     Route: 048
  9. FEBURIC [Concomitant]
     Dosage: 10 MG MILLIGRAM(S), DAILY DOSE
     Route: 048
  10. FLUITRAN [Concomitant]
     Indication: CARDIAC FAILURE
     Dosage: 1 MG MILLIGRAM(S), DAILY DOSE
     Route: 048
  11. MEVALOTIN [Concomitant]
     Dosage: 5 MG MILLIGRAM(S), DAILY DOSE
     Route: 048
  12. WARFARIN [Concomitant]
     Indication: CARDIAC FAILURE
     Dosage: 1 MG MILLIGRAM(S), DAILY DOSE
     Route: 048
  13. LUPRAC [Concomitant]
     Indication: CARDIAC FAILURE
     Dosage: 8 MG MILLIGRAM(S), DAILY DOSE
     Route: 048

REACTIONS (1)
  - Eosinophil count increased [Recovered/Resolved]
